FAERS Safety Report 20623423 (Version 1)
Quarter: 2022Q1

REPORT INFORMATION
  Report Type: Spontaneous
  Country: JP (occurrence: JP)
  Receive Date: 20220322
  Receipt Date: 20220322
  Transmission Date: 20220423
  Serious: Yes (Other)
  Sender: FDA-Public Use
  Company Number: JP-BIOGEN-2021BI01070858

PATIENT
  Age: 6 Year
  Sex: Male

DRUGS (17)
  1. AVONEX [Suspect]
     Active Substance: INTERFERON BETA-1A
     Indication: Neuromyelitis optica spectrum disorder
     Route: 065
     Dates: start: 20150224, end: 20150612
  2. AVONEX [Suspect]
     Active Substance: INTERFERON BETA-1A
  3. AVONEX [Suspect]
     Active Substance: INTERFERON BETA-1A
  4. AVONEX [Suspect]
     Active Substance: INTERFERON BETA-1A
  5. AVONEX [Suspect]
     Active Substance: INTERFERON BETA-1A
  6. AVONEX [Suspect]
     Active Substance: INTERFERON BETA-1A
  7. AVONEX [Suspect]
     Active Substance: INTERFERON BETA-1A
  8. AVONEX [Suspect]
     Active Substance: INTERFERON BETA-1A
  9. AVONEX [Suspect]
     Active Substance: INTERFERON BETA-1A
  10. AVONEX [Suspect]
     Active Substance: INTERFERON BETA-1A
  11. AVONEX [Suspect]
     Active Substance: INTERFERON BETA-1A
  12. AVONEX [Suspect]
     Active Substance: INTERFERON BETA-1A
  13. AVONEX [Suspect]
     Active Substance: INTERFERON BETA-1A
  14. AZATHIOPRINE [Concomitant]
     Active Substance: AZATHIOPRINE
     Indication: Neuromyelitis optica spectrum disorder
     Route: 065
  15. RITUXIMAB [Concomitant]
     Active Substance: RITUXIMAB
     Indication: Neuromyelitis optica spectrum disorder
     Route: 065
  16. METHOTREXATE [Concomitant]
     Active Substance: METHOTREXATE
     Indication: Neuromyelitis optica spectrum disorder
     Route: 065
  17. TOCILIZUMAB [Concomitant]
     Active Substance: TOCILIZUMAB
     Indication: Neuromyelitis optica spectrum disorder
     Route: 065

REACTIONS (2)
  - Neuromyelitis optica spectrum disorder [Not Recovered/Not Resolved]
  - Off label use [Unknown]

NARRATIVE: CASE EVENT DATE: 20150619
